FAERS Safety Report 7045918-9 (Version None)
Quarter: 2010Q4

REPORT INFORMATION
  Report Type: 
  Country: None (occurrence: None)
  Receive Date: 20101014
  Receipt Date: 20100909
  Transmission Date: 20110411
  Serious: Yes (Death, Other)
  Sender: FDA-Public Use
  Company Number: US-BAXTER-2009BH017525

PATIENT
  Age: 64 Year
  Sex: Male
  Weight: 140 kg

DRUGS (17)
  1. HEPARIN SODIUM INJECTION [Suspect]
     Indication: COX-MAZE PROCEDURE
     Route: 042
     Dates: start: 20071221, end: 20071221
  2. HEPARIN SODIUM INJECTION [Suspect]
     Indication: CENTRAL VENOUS CATHETERISATION
     Route: 042
     Dates: start: 20071221, end: 20071221
  3. HEPARIN SODIUM INJECTION [Suspect]
     Indication: THROMBOSIS PROPHYLAXIS
     Route: 042
     Dates: start: 20071221, end: 20071221
  4. HEPARIN SODIUM INJECTION [Suspect]
     Route: 042
     Dates: start: 20071223, end: 20071201
  5. HEPARIN SODIUM INJECTION [Suspect]
     Route: 042
     Dates: start: 20071223, end: 20071201
  6. HEPARIN SODIUM INJECTION [Suspect]
     Route: 042
     Dates: start: 20071223, end: 20071201
  7. HEPARIN SODIUM INJECTION [Suspect]
     Route: 010
     Dates: start: 20071223, end: 20071201
  8. HEPARIN SODIUM INJECTION [Suspect]
     Route: 010
     Dates: start: 20071223, end: 20071201
  9. HEPARIN SODIUM INJECTION [Suspect]
     Route: 010
     Dates: start: 20071223, end: 20071201
  10. HEPARIN SODIUM 5,000 UNITS IN DEXTROSE 5% [Suspect]
     Indication: PRODUCT USED FOR UNKNOWN INDICATION
     Route: 042
     Dates: start: 20071228
  11. TOPROL-XL [Concomitant]
     Indication: PRODUCT USED FOR UNKNOWN INDICATION
     Route: 048
  12. LISINOPRIL [Concomitant]
     Indication: PRODUCT USED FOR UNKNOWN INDICATION
     Route: 048
  13. WARFARIN SODIUM [Concomitant]
     Indication: PRODUCT USED FOR UNKNOWN INDICATION
     Route: 048
  14. GLIPIZIDE [Concomitant]
     Indication: PRODUCT USED FOR UNKNOWN INDICATION
     Route: 048
  15. AMIODARONE HCL [Concomitant]
     Indication: PRODUCT USED FOR UNKNOWN INDICATION
     Route: 048
  16. METFORMIN [Concomitant]
     Indication: PRODUCT USED FOR UNKNOWN INDICATION
     Route: 048
  17. LOVENOX [Concomitant]
     Indication: PRODUCT USED FOR UNKNOWN INDICATION
     Route: 065
     Dates: start: 20071216, end: 20071220

REACTIONS (20)
  - ANAEMIA [None]
  - ATELECTASIS [None]
  - ATRIAL FIBRILLATION [None]
  - COLITIS ISCHAEMIC [None]
  - CONVULSION [None]
  - DISTURBANCE IN ATTENTION [None]
  - ENTEROBACTER INFECTION [None]
  - HEPARIN-INDUCED THROMBOCYTOPENIA [None]
  - HYPERSENSITIVITY [None]
  - INTESTINAL INFARCTION [None]
  - ISCHAEMIC HEPATITIS [None]
  - JUGULAR VEIN THROMBOSIS [None]
  - LEUKOCYTOSIS [None]
  - PERIPHERAL EMBOLISM [None]
  - PSEUDOMONAS INFECTION [None]
  - RENAL FAILURE ACUTE [None]
  - RESPIRATORY FAILURE [None]
  - STAPHYLOCOCCAL INFECTION [None]
  - TACHYCARDIA [None]
  - UNRESPONSIVE TO STIMULI [None]
